FAERS Safety Report 19381634 (Version 1)
Quarter: 2021Q2

REPORT INFORMATION
  Report Type: Spontaneous
  Country: US (occurrence: US)
  Receive Date: 20210605
  Receipt Date: 20210605
  Transmission Date: 20210717
  Serious: Yes (Other)
  Sender: FDA-Public Use
  Company Number: None

PATIENT
  Age: 4 Year
  Sex: Male
  Weight: 22.5 kg

DRUGS (1)
  1. PHOSPHOLINE IODIDE [Suspect]
     Active Substance: ECHOTHIOPHATE IODIDE
     Indication: APHAKIC GLAUCOMA
     Route: 047
     Dates: start: 20190601

REACTIONS (3)
  - Manufacturing production issue [None]
  - Legal problem [None]
  - Product availability issue [None]

NARRATIVE: CASE EVENT DATE: 20210501
